FAERS Safety Report 7486099-7 (Version None)
Quarter: 2011Q2

REPORT INFORMATION
  Report Type: 
  Country: None (occurrence: None)
  Receive Date: 20110517
  Receipt Date: 20110428
  Transmission Date: 20111010
  Serious: No
  Sender: FDA-Public Use
  Company Number: US-B.I. PHARMACEUTICALS,INC./RIDGEFIELD-2011-BP-03515BP

PATIENT
  Sex: Female

DRUGS (10)
  1. COLCHICINE [Concomitant]
     Indication: GOUTY ARTHRITIS
  2. VITAMINS [Concomitant]
     Indication: PROPHYLAXIS
  3. PRADAXA [Suspect]
     Indication: ANTICOAGULANT THERAPY
  4. DIGOXIN [Concomitant]
     Indication: ATRIAL FIBRILLATION
  5. PROBENECID [Concomitant]
     Indication: GOUTY ARTHRITIS
  6. TOPROL-XL [Concomitant]
     Indication: HYPERTENSION
  7. RED YEAST RICE [Concomitant]
     Indication: PROPHYLAXIS
  8. FISH OIL [Concomitant]
     Indication: PROPHYLAXIS
  9. PRADAXA [Suspect]
     Indication: ATRIAL FIBRILLATION
     Dosage: 300 MG
     Route: 048
     Dates: start: 20110128, end: 20110202
  10. LIDOCAINE PATCHES [Concomitant]
     Indication: PAIN

REACTIONS (5)
  - HEADACHE [None]
  - OROPHARYNGEAL PAIN [None]
  - PRURITUS [None]
  - FLUSHING [None]
  - SWELLING FACE [None]
